FAERS Safety Report 14217902 (Version 2)
Quarter: 2017Q4

REPORT INFORMATION
  Report Type: Report from Study
  Country: US (occurrence: US)
  Receive Date: 20171123
  Receipt Date: 20171218
  Transmission Date: 20180321
  Serious: No
  Sender: FDA-Public Use
  Company Number: US-ROCHE-2027452

PATIENT
  Age: 66 Year
  Sex: Female
  Weight: 54.03 kg

DRUGS (7)
  1. TYSABRI [Concomitant]
     Active Substance: NATALIZUMAB
     Indication: MULTIPLE SCLEROSIS
     Dosage: ONGOING-NO?THERAPY FOR THREE YEARS AND TWO MONTHS?TOO MANY TIMES EVERY SIX WEEKS
     Route: 065
  2. OCREVUS [Suspect]
     Active Substance: OCRELIZUMAB
     Dosage: SECOND PART OF FIRST INFUSION
     Route: 042
     Dates: start: 20170522
  3. OCREVUS [Suspect]
     Active Substance: OCRELIZUMAB
     Route: 042
  4. OCREVUS [Suspect]
     Active Substance: OCRELIZUMAB
     Indication: MULTIPLE SCLEROSIS
     Dosage: ONGOING-YES?ON DAY 1 DAY 15
     Route: 042
     Dates: start: 20170510
  5. COPAXONE [Concomitant]
     Active Substance: GLATIRAMER ACETATE
     Indication: MULTIPLE SCLEROSIS
     Dosage: ONGOING-NO?FIRST SIX YEARS COPAXONE SHOT EVERY DAY
     Route: 065
  6. AMPYRA [Concomitant]
     Active Substance: DALFAMPRIDINE
     Indication: MULTIPLE SCLEROSIS
     Dosage: ONGOING-YES
     Route: 065
  7. VITAMIN B12 [Concomitant]
     Active Substance: CYANOCOBALAMIN
     Dosage: SHELF ADM SHOT IN STOMACH  ON SUNDAY AND WEDNESDAY ;ONGOING: YES
     Route: 065

REACTIONS (3)
  - Weight decreased [Unknown]
  - Sinusitis [Recovered/Resolved]
  - Cough [Recovering/Resolving]

NARRATIVE: CASE EVENT DATE: 20170515
